APPROVED DRUG PRODUCT: AZITHROMYCIN
Active Ingredient: AZITHROMYCIN
Strength: EQ 500MG BASE
Dosage Form/Route: TABLET;ORAL
Application: A210001 | Product #001 | TE Code: AB
Applicant: BIONPHARMA INC
Approved: Feb 26, 2019 | RLD: No | RS: No | Type: RX